FAERS Safety Report 19472052 (Version 1)
Quarter: 2021Q2

REPORT INFORMATION
  Report Type: Spontaneous
  Country: FI (occurrence: FI)
  Receive Date: 20210629
  Receipt Date: 20210629
  Transmission Date: 20210717
  Serious: Yes (Death)
  Sender: FDA-Public Use
  Company Number: FI-009507513-2106FIN006935

PATIENT
  Age: 71 Year
  Sex: Male

DRUGS (6)
  1. CANDESARTAN ORION [Concomitant]
     Active Substance: CANDESARTAN
     Dosage: 4,MG,DAILY
  2. METOHEXAL [METOPROLOL SUCCINATE] [Concomitant]
     Active Substance: METOPROLOL SUCCINATE
     Dosage: 47.5,MG,DAILY
  3. ELIQUIS [Concomitant]
     Active Substance: APIXABAN
     Dosage: 10,MG,DAILY
  4. ATORVASTATIN [Concomitant]
     Active Substance: ATORVASTATIN
     Dosage: 40,MG,DAILY
  5. KEYTRUDA [Suspect]
     Active Substance: PEMBROLIZUMAB
     Indication: LUNG NEOPLASM MALIGNANT
     Dosage: ,,CYCLICAL
     Route: 042
     Dates: start: 20200326, end: 20200709
  6. FURESIS [Concomitant]
     Active Substance: FUROSEMIDE
     Dosage: 40,MG,DAILY

REACTIONS (15)
  - Pulmonary oedema [Fatal]
  - Myocardial infarction [Fatal]
  - Congestive hepatopathy [Fatal]
  - Pneumonia [Fatal]
  - Nystagmus [Fatal]
  - Status epilepticus [Fatal]
  - Lung abscess [Fatal]
  - Dizziness [Fatal]
  - Immune-mediated hepatitis [Fatal]
  - Axonal and demyelinating polyneuropathy [Fatal]
  - Streptococcal sepsis [Fatal]
  - Thrombocytopenia [Fatal]
  - Hypothyroidism [Fatal]
  - Immunoglobulin therapy [Fatal]
  - Diplopia [Fatal]

NARRATIVE: CASE EVENT DATE: 20200818
